FAERS Safety Report 7993512-5 (Version None)
Quarter: 2011Q4

REPORT INFORMATION
  Report Type: 
  Country: None (occurrence: None)
  Receive Date: 20111219
  Receipt Date: 20111017
  Transmission Date: 20120403
  Serious: No
  Sender: FDA-Public Use
  Company Number: US-ASTRAZENECA-2011SE62370

PATIENT
  Age: 66 Year
  Sex: Male

DRUGS (2)
  1. CRESTOR [Suspect]
     Route: 048
  2. CRESTOR [Suspect]
     Dosage: HALF TABLET
     Route: 048

REACTIONS (7)
  - INSOMNIA [None]
  - PAIN IN EXTREMITY [None]
  - ASTHENIA [None]
  - WRONG TECHNIQUE IN DRUG USAGE PROCESS [None]
  - TENDERNESS [None]
  - DRUG PRESCRIBING ERROR [None]
  - CONSTIPATION [None]
